FAERS Safety Report 14966136 (Version 1)
Quarter: 2018Q2

REPORT INFORMATION
  Report Type: Report from Study
  Country: CA (occurrence: CA)
  Receive Date: 20180603
  Receipt Date: 20180603
  Transmission Date: 20180711
  Serious: Yes (Hospitalization, Other)
  Sender: FDA-Public Use
  Company Number: PHHY2011CA123123

PATIENT
  Age: 50 Year
  Sex: Female

DRUGS (89)
  1. XOLAIR [Suspect]
     Active Substance: OMALIZUMAB
     Dosage: 375 MG, BIW (EVERY 2 WEEKS)
     Route: 058
     Dates: start: 20110601
  2. XOLAIR [Suspect]
     Active Substance: OMALIZUMAB
     Dosage: UNK
     Route: 058
     Dates: start: 20120926
  3. XOLAIR [Suspect]
     Active Substance: OMALIZUMAB
     Dosage: UNK
     Route: 058
     Dates: start: 20130710
  4. XOLAIR [Suspect]
     Active Substance: OMALIZUMAB
     Dosage: UNK
     Route: 058
     Dates: start: 20131111
  5. XOLAIR [Suspect]
     Active Substance: OMALIZUMAB
     Dosage: UNK
     Route: 058
     Dates: start: 20150514
  6. XOLAIR [Suspect]
     Active Substance: OMALIZUMAB
     Dosage: UNK
     Route: 058
     Dates: start: 20160322
  7. DILTIAZEM. [Suspect]
     Active Substance: DILTIAZEM
     Indication: PRODUCT USED FOR UNKNOWN INDICATION
     Dosage: QD
     Route: 065
  8. VENTOLIN [Suspect]
     Active Substance: ALBUTEROL SULFATE
     Indication: ASTHMA
     Dosage: UNK, QD
     Route: 065
  9. VENTOLIN [Suspect]
     Active Substance: ALBUTEROL SULFATE
     Indication: COUGH
     Dosage: 40 PUFFS, QD
     Route: 065
     Dates: start: 20131124
  10. VENTOLIN [Suspect]
     Active Substance: ALBUTEROL SULFATE
     Indication: HYPERSENSITIVITY
     Dosage: UNK, QD
     Route: 065
  11. VENTOLIN [Suspect]
     Active Substance: ALBUTEROL SULFATE
     Dosage: 2 DF, QID
     Route: 065
  12. ADVAIR HFA [Concomitant]
     Active Substance: FLUTICASONE PROPIONATE\SALMETEROL XINAFOATE
     Indication: PRODUCT USED FOR UNKNOWN INDICATION
     Dosage: 200 OT, BID
     Route: 055
     Dates: start: 201201
  13. ALVESCO [Concomitant]
     Active Substance: CICLESONIDE
     Indication: PRODUCT USED FOR UNKNOWN INDICATION
     Dosage: 2 DF, QID
     Route: 065
  14. COMBIVENT [Concomitant]
     Active Substance: ALBUTEROL SULFATE\IPRATROPIUM BROMIDE
     Indication: PRODUCT USED FOR UNKNOWN INDICATION
     Dosage: 20 UG, UNK
     Route: 065
     Dates: start: 201507
  15. XOLAIR [Suspect]
     Active Substance: OMALIZUMAB
     Dosage: 375 MG, BIW
     Route: 058
  16. XOLAIR [Suspect]
     Active Substance: OMALIZUMAB
     Dosage: UNK
     Route: 058
     Dates: start: 20141030
  17. XOLAIR [Suspect]
     Active Substance: OMALIZUMAB
     Dosage: UNK
     Route: 058
     Dates: start: 20160504
  18. XOLAIR [Suspect]
     Active Substance: OMALIZUMAB
     Dosage: UNK
     Route: 058
     Dates: start: 20160627
  19. XOLAIR [Suspect]
     Active Substance: OMALIZUMAB
     Dosage: UNK
     Route: 058
     Dates: start: 20160713
  20. XOLAIR [Suspect]
     Active Substance: OMALIZUMAB
     Dosage: UNK
     Route: 058
     Dates: start: 20170710
  21. XOLAIR [Suspect]
     Active Substance: OMALIZUMAB
     Indication: ASTHMA
     Dosage: 375 MG, BIW
     Route: 058
     Dates: start: 20180511
  22. VENTOLIN [Suspect]
     Active Substance: ALBUTEROL SULFATE
     Dosage: 2 TO 8 PUFFS DAILY
     Route: 055
  23. ZITHROMAX [Suspect]
     Active Substance: AZITHROMYCIN DIHYDRATE
     Indication: INFECTION
     Dosage: 250 MG, TIW (3 TIMES A WEEK, MONDAY, WEDNESDAY AND FRIDAY)
     Route: 065
  24. PREDNISONE. [Suspect]
     Active Substance: PREDNISONE
     Indication: ASTHMA
     Dosage: 50 MG, UNK
     Route: 065
     Dates: start: 20121101, end: 20121105
  25. PREDNISONE. [Suspect]
     Active Substance: PREDNISONE
     Indication: CHEST DISCOMFORT
     Dosage: 50 MG, QD
     Route: 065
     Dates: start: 20140214, end: 20140218
  26. PREDNISONE. [Suspect]
     Active Substance: PREDNISONE
     Dosage: 50 MG, FOR 4 DAYS (TAPERED DOSE )
     Route: 065
     Dates: start: 20141024
  27. PREDNISONE. [Suspect]
     Active Substance: PREDNISONE
     Dosage: 50 MG, QD
     Route: 065
     Dates: start: 20150204
  28. PREDNISONE. [Suspect]
     Active Substance: PREDNISONE
     Dosage: 15 MG, UNK
     Route: 065
  29. XOLAIR [Suspect]
     Active Substance: OMALIZUMAB
     Dosage: UNK
     Route: 058
     Dates: start: 20131227
  30. XOLAIR [Suspect]
     Active Substance: OMALIZUMAB
     Dosage: UNK
     Route: 058
     Dates: start: 20140422
  31. XOLAIR [Suspect]
     Active Substance: OMALIZUMAB
     Dosage: UNK
     Route: 058
     Dates: start: 20141217
  32. XOLAIR [Suspect]
     Active Substance: OMALIZUMAB
     Dosage: UNK
     Route: 058
     Dates: start: 20170308
  33. PREDNISONE. [Suspect]
     Active Substance: PREDNISONE
     Dosage: 50 MG, FOR 5 DAYS
     Route: 065
     Dates: start: 20141203, end: 20141207
  34. PREDNISONE. [Suspect]
     Active Substance: PREDNISONE
     Dosage: 50 MG, QD
     Route: 065
     Dates: start: 20150302
  35. PREDNISONE. [Suspect]
     Active Substance: PREDNISONE
     Dosage: 50 MG, UNK
     Route: 065
     Dates: start: 20160314, end: 20160318
  36. PREDNISONE. [Suspect]
     Active Substance: PREDNISONE
     Dosage: UNK
     Route: 065
     Dates: start: 201704, end: 20170424
  37. ZENHALE [Concomitant]
     Active Substance: FORMOTEROL FUMARATE\MOMETASONE FUROATE
     Indication: PRODUCT USED FOR UNKNOWN INDICATION
     Route: 065
     Dates: end: 201201
  38. XOLAIR [Suspect]
     Active Substance: OMALIZUMAB
     Dosage: UNK
     Route: 058
     Dates: start: 20111031
  39. XOLAIR [Suspect]
     Active Substance: OMALIZUMAB
     Dosage: UNK
     Route: 058
     Dates: start: 20140306
  40. XOLAIR [Suspect]
     Active Substance: OMALIZUMAB
     Dosage: UNK
     Route: 058
     Dates: start: 20150219
  41. XOLAIR [Suspect]
     Active Substance: OMALIZUMAB
     Dosage: UNK
     Route: 058
     Dates: start: 20170208
  42. XOLAIR [Suspect]
     Active Substance: OMALIZUMAB
     Dosage: UNK
     Route: 058
     Dates: start: 20170613
  43. XOLAIR [Suspect]
     Active Substance: OMALIZUMAB
     Dosage: UNK
     Route: 058
     Dates: start: 20170626
  44. VENTOLIN [Suspect]
     Active Substance: ALBUTEROL SULFATE
     Dosage: 60 DF (60 PUFFS)
     Route: 065
     Dates: start: 20160103
  45. PREDNISONE. [Suspect]
     Active Substance: PREDNISONE
     Dosage: 50 MG FOR 7 DAYS DAYS WITH WEANING ORDERS (10 MG EVERY 3 DAYS)
     Route: 065
     Dates: start: 20141023
  46. PREDNISONE. [Suspect]
     Active Substance: PREDNISONE
     Dosage: 50 MG, FOR FIVE MORE DAYS AND THEN A TAPERED DOSE
     Route: 065
     Dates: end: 20150115
  47. PREDNISONE. [Suspect]
     Active Substance: PREDNISONE
     Dosage: 50 MG, UNK
     Route: 065
     Dates: start: 20150925
  48. PREDNISONE. [Suspect]
     Active Substance: PREDNISONE
     Dosage: 40 MG, UNK
     Route: 065
     Dates: start: 20170425
  49. TUMS [Concomitant]
     Active Substance: CALCIUM CARBONATE
     Indication: PRODUCT USED FOR UNKNOWN INDICATION
     Dosage: 1 DF, UNK
     Route: 065
  50. XOLAIR [Suspect]
     Active Substance: OMALIZUMAB
     Indication: ASTHMA
     Dosage: 375 MG, BIW
     Route: 058
     Dates: start: 20110210
  51. XOLAIR [Suspect]
     Active Substance: OMALIZUMAB
     Dosage: UNK
     Route: 058
     Dates: start: 20120425
  52. XOLAIR [Suspect]
     Active Substance: OMALIZUMAB
     Dosage: UNK
     Route: 058
     Dates: start: 20130411
  53. XOLAIR [Suspect]
     Active Substance: OMALIZUMAB
     Dosage: UNK
     Route: 058
     Dates: start: 20130904
  54. XOLAIR [Suspect]
     Active Substance: OMALIZUMAB
     Dosage: UNK
     Route: 058
     Dates: start: 20140320
  55. XOLAIR [Suspect]
     Active Substance: OMALIZUMAB
     Dosage: UNK
     Route: 058
     Dates: start: 20140501
  56. XOLAIR [Suspect]
     Active Substance: OMALIZUMAB
     Dosage: UNK
     Route: 058
     Dates: start: 20161130
  57. ZITHROMAX [Suspect]
     Active Substance: AZITHROMYCIN DIHYDRATE
     Indication: RESPIRATORY TRACT CONGESTION
  58. DEXILANT [Concomitant]
     Active Substance: DEXLANSOPRAZOLE
     Indication: PRODUCT USED FOR UNKNOWN INDICATION
     Dosage: 1 DF, QD
     Route: 065
  59. XOLAIR [Suspect]
     Active Substance: OMALIZUMAB
     Dosage: UNK
     Route: 058
     Dates: start: 20110825
  60. XOLAIR [Suspect]
     Active Substance: OMALIZUMAB
     Dosage: 375 MG, BIW (EVERY 2 WEEKS)
     Route: 058
     Dates: start: 20111003
  61. XOLAIR [Suspect]
     Active Substance: OMALIZUMAB
     Dosage: 375 MG, BIW (EVERY 2 WEEKS)
     Route: 058
     Dates: start: 20120523
  62. XOLAIR [Suspect]
     Active Substance: OMALIZUMAB
     Dosage: UNK
     Route: 058
     Dates: start: 20140123
  63. XOLAIR [Suspect]
     Active Substance: OMALIZUMAB
     Dosage: UNK
     Route: 058
     Dates: start: 20141111
  64. XOLAIR [Suspect]
     Active Substance: OMALIZUMAB
     Dosage: UNK
     Route: 058
     Dates: start: 20150805
  65. XOLAIR [Suspect]
     Active Substance: OMALIZUMAB
     Dosage: UNK
     Route: 058
     Dates: start: 20170419
  66. XOLAIR [Suspect]
     Active Substance: OMALIZUMAB
     Dosage: UNK
     Route: 058
     Dates: start: 20170515
  67. PREDNISONE. [Suspect]
     Active Substance: PREDNISONE
     Dosage: 50 MG, UNK
     Route: 065
  68. PREDNISONE. [Suspect]
     Active Substance: PREDNISONE
     Dosage: 50 MG, (WILL BE TAPERING FOR 17 MORE DAYS)
     Route: 065
     Dates: start: 20160511
  69. SPIRIVA [Concomitant]
     Active Substance: TIOTROPIUM BROMIDE MONOHYDRATE
     Indication: PRODUCT USED FOR UNKNOWN INDICATION
     Dosage: 2 DF, QD
     Route: 065
  70. GAVISCON [Concomitant]
     Active Substance: ALUMINUM HYDROXIDE\MAGNESIUM CARBONATE
     Indication: PRODUCT USED FOR UNKNOWN INDICATION
     Dosage: 1 DF, QID
     Route: 048
  71. ATROVENT [Concomitant]
     Active Substance: IPRATROPIUM BROMIDE
     Indication: PRODUCT USED FOR UNKNOWN INDICATION
     Dosage: 2 DF, QID
     Route: 065
  72. XOLAIR [Suspect]
     Active Substance: OMALIZUMAB
     Dosage: UNK
     Route: 058
     Dates: start: 20131002
  73. XOLAIR [Suspect]
     Active Substance: OMALIZUMAB
     Dosage: UNK
     Route: 058
     Dates: start: 20151223
  74. XOLAIR [Suspect]
     Active Substance: OMALIZUMAB
     Dosage: 375 MG, BIW
     Route: 058
     Dates: start: 20180511
  75. VENTOLIN [Suspect]
     Active Substance: ALBUTEROL SULFATE
     Indication: CHEST DISCOMFORT
     Dosage: UNK
     Route: 065
     Dates: start: 20120819
  76. VENTOLIN [Suspect]
     Active Substance: ALBUTEROL SULFATE
     Dosage: UNK, QD
     Route: 065
  77. PREDNISONE. [Suspect]
     Active Substance: PREDNISONE
     Indication: DYSPNOEA
     Dosage: 50 MG, UNK
     Route: 065
  78. PREDNISONE. [Suspect]
     Active Substance: PREDNISONE
     Dosage: 50 MG, QD (FOR 5 DAYS)
     Route: 065
  79. XOLAIR [Suspect]
     Active Substance: OMALIZUMAB
     Dosage: UNK
     Route: 058
     Dates: start: 20140403
  80. XOLAIR [Suspect]
     Active Substance: OMALIZUMAB
     Dosage: UNK
     Route: 058
     Dates: start: 20150205
  81. XOLAIR [Suspect]
     Active Substance: OMALIZUMAB
     Dosage: UNK
     Route: 058
     Dates: start: 20160601
  82. XOLAIR [Suspect]
     Active Substance: OMALIZUMAB
     Dosage: UNK
     Route: 058
     Dates: start: 20170530
  83. XOLAIR [Suspect]
     Active Substance: OMALIZUMAB
     Dosage: UNK
     Route: 058
     Dates: start: 20170721
  84. VENTOLIN [Suspect]
     Active Substance: ALBUTEROL SULFATE
     Indication: DYSPNOEA
     Dosage: UNK
     Route: 065
     Dates: start: 20110530
  85. PREDNISONE. [Suspect]
     Active Substance: PREDNISONE
     Indication: PNEUMONIA
     Dosage: 50 MG, UNK
     Route: 065
     Dates: start: 201410
  86. PREDNISONE. [Suspect]
     Active Substance: PREDNISONE
     Dosage: 50 MG, UNK
     Route: 065
     Dates: start: 20160720
  87. PREDNISONE. [Suspect]
     Active Substance: PREDNISONE
     Dosage: 50 MG, UNK
     Route: 065
     Dates: start: 20170214, end: 20170225
  88. ADVAIR HFA [Concomitant]
     Active Substance: FLUTICASONE PROPIONATE\SALMETEROL XINAFOATE
     Dosage: 1 DF (500), BID
     Route: 055
  89. GAVISCON [Concomitant]
     Active Substance: ALUMINUM HYDROXIDE\MAGNESIUM CARBONATE
     Dosage: 1 DF, BID
     Route: 048

REACTIONS (78)
  - Feeling abnormal [Unknown]
  - Muscle disorder [Unknown]
  - Musculoskeletal discomfort [Unknown]
  - Breath sounds abnormal [Unknown]
  - Dizziness [Not Recovered/Not Resolved]
  - Peak expiratory flow rate decreased [Not Recovered/Not Resolved]
  - Cough [Not Recovered/Not Resolved]
  - Tendonitis [Not Recovered/Not Resolved]
  - Muscle spasms [Unknown]
  - Crepitations [Recovered/Resolved]
  - Rhinorrhoea [Unknown]
  - Drug ineffective [Unknown]
  - Pneumonia [Unknown]
  - Chest discomfort [Unknown]
  - Dyspnoea exertional [Unknown]
  - Haemarthrosis [Unknown]
  - Memory impairment [Unknown]
  - Gait disturbance [Unknown]
  - Odynophagia [Unknown]
  - Seasonal allergy [Unknown]
  - Frustration tolerance decreased [Unknown]
  - Gastrooesophageal reflux disease [Unknown]
  - Breath odour [Unknown]
  - Lung disorder [Unknown]
  - Pain in extremity [Unknown]
  - Dizziness [Recovered/Resolved]
  - Fatigue [Recovering/Resolving]
  - Dyspnoea [Not Recovered/Not Resolved]
  - Hypoventilation [Unknown]
  - Productive cough [Unknown]
  - Sputum discoloured [Unknown]
  - Balance disorder [Unknown]
  - Stress [Not Recovered/Not Resolved]
  - Body temperature decreased [Not Recovered/Not Resolved]
  - Insomnia [Unknown]
  - Respiratory rate increased [Unknown]
  - Humidity intolerance [Unknown]
  - Nasopharyngitis [Unknown]
  - Dyspepsia [Unknown]
  - Blood pressure systolic increased [Not Recovered/Not Resolved]
  - Tremor [Unknown]
  - Chest pain [Unknown]
  - Infection [Unknown]
  - Malaise [Not Recovered/Not Resolved]
  - Pyrexia [Recovered/Resolved]
  - Blood glucose abnormal [Unknown]
  - Pollakiuria [Unknown]
  - Carbon dioxide increased [Unknown]
  - Pulmonary function test decreased [Unknown]
  - Abdominal discomfort [Unknown]
  - Diarrhoea [Recovered/Resolved]
  - Heart rate increased [Unknown]
  - Forced expiratory volume decreased [Unknown]
  - Peak expiratory flow rate abnormal [Unknown]
  - Weight decreased [Unknown]
  - Bronchitis [Unknown]
  - Peripheral swelling [Unknown]
  - Hypersensitivity [Unknown]
  - Headache [Not Recovered/Not Resolved]
  - Asthma [Not Recovered/Not Resolved]
  - Wheezing [Recovered/Resolved]
  - Asthenia [Unknown]
  - Bladder disorder [Unknown]
  - Respiratory tract congestion [Not Recovered/Not Resolved]
  - Vomiting [Recovered/Resolved]
  - Viral infection [Unknown]
  - Oropharyngeal pain [Unknown]
  - Alopecia [Not Recovered/Not Resolved]
  - Injury [Unknown]
  - Joint swelling [Unknown]
  - Brain hypoxia [Unknown]
  - Fall [Unknown]
  - General physical health deterioration [Unknown]
  - Oral candidiasis [Unknown]
  - Poor quality sleep [Not Recovered/Not Resolved]
  - Palpitations [Unknown]
  - Headache [Recovered/Resolved]
  - Paraesthesia [Recovered/Resolved]

NARRATIVE: CASE EVENT DATE: 20110210
